FAERS Safety Report 25153757 (Version 2)
Quarter: 2025Q2

REPORT INFORMATION
  Report Type: Spontaneous
  Country: US (occurrence: US)
  Receive Date: 20250403
  Receipt Date: 20250408
  Transmission Date: 20250716
  Serious: No
  Sender: APOTEX
  Company Number: US-APOTEX-2025AP003340

PATIENT
  Sex: Male

DRUGS (1)
  1. OLANZAPINE [Suspect]
     Active Substance: OLANZAPINE
     Indication: Product used for unknown indication
     Dosage: 1 DOSAGE FORM, Q.O.D.
     Route: 065
     Dates: start: 2019

REACTIONS (6)
  - Irritability [Unknown]
  - Memory impairment [Unknown]
  - Malaise [Unknown]
  - Product label confusion [Unknown]
  - Expired product administered [Unknown]
  - Asthenia [Unknown]
